FAERS Safety Report 7217144-1 (Version None)
Quarter: 2011Q1

REPORT INFORMATION
  Report Type: 
  Country: None (occurrence: None)
  Receive Date: 20110110
  Receipt Date: 20110104
  Transmission Date: 20110831
  Serious: Yes (Hospitalization)
  Sender: FDA-Public Use
  Company Number: FR-BRISTOL-MYERS SQUIBB COMPANY-15474406

PATIENT
  Age: 15 Year
  Sex: Female

DRUGS (4)
  1. ABILIFY [Suspect]
     Dosage: ABILIFY 10 MG/D SINCE 2008 INCREASED TO 20 MG DAILY FROM 15NOV2010.
     Dates: start: 20081101
  2. DEPAKOTE [Suspect]
     Dosage: DEPAKOTE 500MG
     Route: 048
     Dates: start: 20090101
  3. VARNOLINE [Suspect]
     Dosage: 1DF= 1 TABLET
     Route: 048
     Dates: start: 20100401, end: 20101203
  4. TERCIAN [Suspect]
     Dosage: TERCIAN 25MG
     Route: 048
     Dates: start: 20070501

REACTIONS (1)
  - CEREBRAL VENOUS THROMBOSIS [None]
